FAERS Safety Report 8277986 (Version 4)
Quarter: 2012Q4

REPORT INFORMATION
  Report Type: Report from Study
  Country: GB (occurrence: GB)
  Receive Date: 20111207
  Receipt Date: 20120919
  Transmission Date: 20130627
  Serious: Yes (Death, Hospitalization)
  Sender: FDA-Public Use
  Company Number: GB-ROCHE-1017965

PATIENT
  Age: 40 Year
  Sex: Female
  Weight: 66.6 kg

DRUGS (1)
  1. ZELBORAF [Suspect]
     Indication: METASTATIC MALIGNANT MELANOMA
     Route: 048
     Dates: start: 20111011, end: 20111205

REACTIONS (2)
  - Pain [Fatal]
  - Anaemia [Recovered/Resolved]
